FAERS Safety Report 16734205 (Version 1)
Quarter: 2019Q3

REPORT INFORMATION
  Report Type: Report from Study
  Country: CN (occurrence: CN)
  Receive Date: 20190823
  Receipt Date: 20190823
  Transmission Date: 20191005
  Serious: Yes (Hospitalization)
  Sender: FDA-Public Use
  Company Number: CN-EISAI MEDICAL RESEARCH-EC-2019-060891

PATIENT
  Age: 57 Year
  Sex: Male
  Weight: 54 kg

DRUGS (3)
  1. LENVIMA [Suspect]
     Active Substance: LENVATINIB
     Indication: HEPATIC CANCER
     Dosage: 3 CAPSULES
     Route: 048
     Dates: start: 201904, end: 201908
  2. LENVIMA [Suspect]
     Active Substance: LENVATINIB
     Dosage: 2 CAPSULES
     Route: 048
     Dates: start: 201908
  3. LENVIMA [Suspect]
     Active Substance: LENVATINIB
     Dosage: 2 CAPSULES
     Route: 048
     Dates: start: 201908, end: 201908

REACTIONS (8)
  - Platelet count decreased [Recovering/Resolving]
  - White blood cells stool [Recovering/Resolving]
  - Diarrhoea [Recovering/Resolving]
  - Dehydration [Recovering/Resolving]
  - Blood albumin decreased [Recovering/Resolving]
  - Ileus [Recovering/Resolving]
  - Decreased appetite [Unknown]
  - Weight decreased [Unknown]

NARRATIVE: CASE EVENT DATE: 201904
